FAERS Safety Report 16517647 (Version 1)
Quarter: 2019Q3

REPORT INFORMATION
  Report Type: Spontaneous
  Country: DE (occurrence: DE)
  Receive Date: 20190702
  Receipt Date: 20190702
  Transmission Date: 20191004
  Serious: Yes (Other)
  Sender: FDA-Public Use
  Company Number: DE-MYLANLABS-2019M1060716

PATIENT
  Sex: Male
  Weight: 1.6 kg

DRUGS (12)
  1. METHYLDOPA. [Concomitant]
     Active Substance: METHYLDOPA
     Indication: BLOOD PRESSURE INCREASED
     Dosage: 250 MG, TID (75 MG, QD)
     Route: 064
  2. METHYLDOPA. [Concomitant]
     Active Substance: METHYLDOPA
     Dosage: 2 GRAM, QD,INCREASED TO THE MAXIMUM DOSE OF 2 G/DAY IN THE COURSE OF THE TREATMENT
     Route: 064
  3. ALLOPURINOL. [Concomitant]
     Active Substance: ALLOPURINOL
     Indication: HAEMODIALYSIS
     Dosage: UNK UNK, 6XW
     Route: 064
  4. TORASEMIDE [Concomitant]
     Active Substance: TORSEMIDE
     Dosage: 50 MILLIGRAM, 3XW (150 MG, QW)
     Route: 064
  5. METOPROLOL. [Suspect]
     Active Substance: METOPROLOL
     Indication: BLOOD PRESSURE INCREASED
     Dosage: UNK
     Route: 064
  6. ALLOPURINOL. [Concomitant]
     Active Substance: ALLOPURINOL
     Dosage: 300 MILLIGRAM, 3XW (900 MG,QW)
     Route: 064
  7. CEFUROXIME. [Concomitant]
     Active Substance: CEFUROXIME
     Dosage: UNK UNK, 6XW
     Route: 064
  8. NIFEDIPINE. [Concomitant]
     Active Substance: NIFEDIPINE
     Indication: BLOOD PRESSURE INCREASED
     Dosage: 10 MG, UNK
     Route: 064
  9. SODIUM HYDROGEN CARBONATE [Concomitant]
     Active Substance: SODIUM BICARBONATE
     Dosage: UNK,6X PER WEEK
     Route: 064
  10. TORASEMIDE [Concomitant]
     Active Substance: TORSEMIDE
     Indication: HAEMODIALYSIS
     Dosage: UNK UNK, 6XW
     Route: 064
  11. CEFUROXIME. [Concomitant]
     Active Substance: CEFUROXIME
     Indication: HAEMODIALYSIS
     Dosage: 250 MG, TIW (750 MG, QW)
     Route: 064
  12. SODIUM HYDROGEN CARBONATE [Concomitant]
     Active Substance: SODIUM BICARBONATE
     Indication: HAEMODIALYSIS
     Dosage: 1 GRAM, 3XW, (3G ,QW)
     Route: 064

REACTIONS (3)
  - Small for dates baby [Unknown]
  - Foetal growth restriction [Unknown]
  - Foetal exposure during pregnancy [Recovered/Resolved]
